FAERS Safety Report 25716005 (Version 1)
Quarter: 2025Q3

REPORT INFORMATION
  Report Type: Spontaneous
  Country: IR (occurrence: IR)
  Receive Date: 20250822
  Receipt Date: 20250822
  Transmission Date: 20251020
  Serious: Yes (Death, Life-Threatening, Hospitalization)
  Sender: MYLAN
  Company Number: IR-MYLANLABS-2025M1071869

PATIENT
  Age: 6 Year
  Sex: Female

DRUGS (48)
  1. METHOTREXATE [Suspect]
     Active Substance: METHOTREXATE
     Indication: B-cell type acute leukaemia
     Dosage: 2000 MILLIGRAM/SQ. METER, QD (BERLIN-FRANKFURT- MUNSTER PROTOCOL)
  2. METHOTREXATE [Suspect]
     Active Substance: METHOTREXATE
     Dosage: 2000 MILLIGRAM/SQ. METER, QD (BERLIN-FRANKFURT- MUNSTER PROTOCOL)
     Route: 065
  3. METHOTREXATE [Suspect]
     Active Substance: METHOTREXATE
     Dosage: 2000 MILLIGRAM/SQ. METER, QD (BERLIN-FRANKFURT- MUNSTER PROTOCOL)
     Route: 065
  4. METHOTREXATE [Suspect]
     Active Substance: METHOTREXATE
     Dosage: 2000 MILLIGRAM/SQ. METER, QD (BERLIN-FRANKFURT- MUNSTER PROTOCOL)
  5. ASPARAGINASE [Suspect]
     Active Substance: ASPARAGINASE
     Indication: B-cell type acute leukaemia
     Dosage: UNK, QD (10000 U/M2/DAY; BERLIN-FRANKFURT- MUNSTER PROTOCOL)
  6. ASPARAGINASE [Suspect]
     Active Substance: ASPARAGINASE
     Dosage: UNK, QD (10000 U/M2/DAY; BERLIN-FRANKFURT- MUNSTER PROTOCOL)
     Route: 065
  7. ASPARAGINASE [Suspect]
     Active Substance: ASPARAGINASE
     Dosage: UNK, QD (10000 U/M2/DAY; BERLIN-FRANKFURT- MUNSTER PROTOCOL)
     Route: 065
  8. ASPARAGINASE [Suspect]
     Active Substance: ASPARAGINASE
     Dosage: UNK, QD (10000 U/M2/DAY; BERLIN-FRANKFURT- MUNSTER PROTOCOL)
  9. VINCRISTINE [Suspect]
     Active Substance: VINCRISTINE
     Indication: B-cell type acute leukaemia
     Dosage: 1.5 MILLIGRAM/SQ. METER, QD (BERLIN-FRANKFURT- MUNSTER PROTOCOL)
  10. VINCRISTINE [Suspect]
     Active Substance: VINCRISTINE
     Dosage: 1.5 MILLIGRAM/SQ. METER, QD (BERLIN-FRANKFURT- MUNSTER PROTOCOL)
     Route: 065
  11. VINCRISTINE [Suspect]
     Active Substance: VINCRISTINE
     Dosage: 1.5 MILLIGRAM/SQ. METER, QD (BERLIN-FRANKFURT- MUNSTER PROTOCOL)
     Route: 065
  12. VINCRISTINE [Suspect]
     Active Substance: VINCRISTINE
     Dosage: 1.5 MILLIGRAM/SQ. METER, QD (BERLIN-FRANKFURT- MUNSTER PROTOCOL)
  13. CYCLOPHOSPHAMIDE [Suspect]
     Active Substance: CYCLOPHOSPHAMIDE
     Indication: B-cell type acute leukaemia
     Dosage: 1000 MILLIGRAM/SQ. METER, QD (BERLIN-FRANKFURT- MUNSTER PROTOCOL)
  14. CYCLOPHOSPHAMIDE [Suspect]
     Active Substance: CYCLOPHOSPHAMIDE
     Dosage: 1000 MILLIGRAM/SQ. METER, QD (BERLIN-FRANKFURT- MUNSTER PROTOCOL)
     Route: 065
  15. CYCLOPHOSPHAMIDE [Suspect]
     Active Substance: CYCLOPHOSPHAMIDE
     Dosage: 1000 MILLIGRAM/SQ. METER, QD (BERLIN-FRANKFURT- MUNSTER PROTOCOL)
     Route: 065
  16. CYCLOPHOSPHAMIDE [Suspect]
     Active Substance: CYCLOPHOSPHAMIDE
     Dosage: 1000 MILLIGRAM/SQ. METER, QD (BERLIN-FRANKFURT- MUNSTER PROTOCOL)
  17. CYTARABINE [Suspect]
     Active Substance: CYTARABINE
     Indication: B-cell type acute leukaemia
     Dosage: 3 MILLIGRAM/SQ. METER, QD (BERLIN-FRANKFURT- MUNSTER PROTOCOL)
  18. CYTARABINE [Suspect]
     Active Substance: CYTARABINE
     Dosage: 3 MILLIGRAM/SQ. METER, QD (BERLIN-FRANKFURT- MUNSTER PROTOCOL)
     Route: 065
  19. CYTARABINE [Suspect]
     Active Substance: CYTARABINE
     Dosage: 3 MILLIGRAM/SQ. METER, QD (BERLIN-FRANKFURT- MUNSTER PROTOCOL)
     Route: 065
  20. CYTARABINE [Suspect]
     Active Substance: CYTARABINE
     Dosage: 3 MILLIGRAM/SQ. METER, QD (BERLIN-FRANKFURT- MUNSTER PROTOCOL)
  21. COTRIMOXAZOLE [Concomitant]
     Active Substance: SULFAMETHOXAZOLE\TRIMETHOPRIM
     Indication: Product used for unknown indication
     Dosage: 5 MILLILITER, QD
  22. COTRIMOXAZOLE [Concomitant]
     Active Substance: SULFAMETHOXAZOLE\TRIMETHOPRIM
     Dosage: 5 MILLILITER, QD
     Route: 065
  23. COTRIMOXAZOLE [Concomitant]
     Active Substance: SULFAMETHOXAZOLE\TRIMETHOPRIM
     Dosage: 5 MILLILITER, QD
     Route: 065
  24. COTRIMOXAZOLE [Concomitant]
     Active Substance: SULFAMETHOXAZOLE\TRIMETHOPRIM
     Dosage: 5 MILLILITER, QD
  25. VITAMIN A [Concomitant]
     Active Substance: VITAMIN A
     Indication: Product used for unknown indication
  26. VITAMIN A [Concomitant]
     Active Substance: VITAMIN A
     Route: 065
  27. VITAMIN A [Concomitant]
     Active Substance: VITAMIN A
     Route: 065
  28. VITAMIN A [Concomitant]
     Active Substance: VITAMIN A
  29. VITAMIN C [Concomitant]
     Active Substance: ASCORBIC ACID
     Indication: Product used for unknown indication
  30. VITAMIN C [Concomitant]
     Active Substance: ASCORBIC ACID
     Route: 065
  31. VITAMIN C [Concomitant]
     Active Substance: ASCORBIC ACID
     Route: 065
  32. VITAMIN C [Concomitant]
     Active Substance: ASCORBIC ACID
  33. VITAMIN D3 [Concomitant]
     Active Substance: CHOLECALCIFEROL
     Indication: Product used for unknown indication
  34. VITAMIN D3 [Concomitant]
     Active Substance: CHOLECALCIFEROL
     Route: 065
  35. VITAMIN D3 [Concomitant]
     Active Substance: CHOLECALCIFEROL
     Route: 065
  36. VITAMIN D3 [Concomitant]
     Active Substance: CHOLECALCIFEROL
  37. FOLIC ACID [Concomitant]
     Active Substance: FOLIC ACID
     Indication: Product used for unknown indication
  38. FOLIC ACID [Concomitant]
     Active Substance: FOLIC ACID
     Route: 065
  39. FOLIC ACID [Concomitant]
     Active Substance: FOLIC ACID
     Route: 065
  40. FOLIC ACID [Concomitant]
     Active Substance: FOLIC ACID
  41. ZINC [Concomitant]
     Active Substance: ZINC
     Indication: Product used for unknown indication
  42. ZINC [Concomitant]
     Active Substance: ZINC
     Route: 065
  43. ZINC [Concomitant]
     Active Substance: ZINC
     Route: 065
  44. ZINC [Concomitant]
     Active Substance: ZINC
  45. MAGNESIUM CITRATE [Concomitant]
     Active Substance: MAGNESIUM CITRATE
     Indication: Product used for unknown indication
  46. MAGNESIUM CITRATE [Concomitant]
     Active Substance: MAGNESIUM CITRATE
     Route: 065
  47. MAGNESIUM CITRATE [Concomitant]
     Active Substance: MAGNESIUM CITRATE
     Route: 065
  48. MAGNESIUM CITRATE [Concomitant]
     Active Substance: MAGNESIUM CITRATE

REACTIONS (12)
  - Brain death [Fatal]
  - Metastases to meninges [Fatal]
  - Sepsis [Fatal]
  - Candida infection [Unknown]
  - Vitamin B1 decreased [Unknown]
  - Wernicke^s encephalopathy [Recovered/Resolved]
  - Nausea [Unknown]
  - Vomiting [Unknown]
  - Rash maculo-papular [Unknown]
  - Rash morbilliform [Unknown]
  - Decreased appetite [Unknown]
  - Weight decreased [Unknown]

NARRATIVE: CASE EVENT DATE: 20220101
